FAERS Safety Report 8563459-4 (Version None)
Quarter: 2012Q3

REPORT INFORMATION
  Report Type: 
  Country: None (occurrence: None)
  Receive Date: 20120802
  Receipt Date: 20120726
  Transmission Date: 20120928
  Serious: Yes (Other)
  Sender: FDA-Public Use
  Company Number: US-ABBOTT-12P-163-0961536-00

PATIENT
  Sex: Male
  Weight: 83.99 kg

DRUGS (6)
  1. LIPITOR [Concomitant]
     Indication: CARDIAC DISORDER
  2. ASPIRIN [Concomitant]
     Indication: CARDIAC DISORDER
  3. CARVEDILOL [Concomitant]
     Indication: MYOCARDIAL INFARCTION
  4. FLOMAX [Concomitant]
     Indication: PROSTATE CANCER
  5. LUPRON DEPOT [Suspect]
     Indication: PROSTATE CANCER
     Dates: start: 20120521
  6. OMEPRAZOLE [Concomitant]
     Indication: ABDOMINAL PAIN

REACTIONS (6)
  - METASTASES TO BONE [None]
  - CONTUSION [None]
  - BACK PAIN [None]
  - PAIN [None]
  - FALL [None]
  - HOT FLUSH [None]
